FAERS Safety Report 26066187 (Version 1)
Quarter: 2025Q4

REPORT INFORMATION
  Report Type: Report from Study
  Country: GB (occurrence: GB)
  Receive Date: 20251119
  Receipt Date: 20251119
  Transmission Date: 20260119
  Serious: Yes (Other)
  Sender: NOVARTIS
  Company Number: GB-002147023-NVSC2025GB177585

PATIENT
  Age: 11 Year
  Sex: Female

DRUGS (4)
  1. MEKINIST [Suspect]
     Active Substance: TRAMETINIB DIMETHYL SULFOXIDE
     Indication: Craniopharyngioma
     Dosage: UNK
     Route: 065
  2. DESMOPRESSIN [Concomitant]
     Active Substance: DESMOPRESSIN
     Indication: Diabetes insipidus
     Dosage: 1400 UG, QD (DOSE GRADUALLY ESCALATED, IN 5 DIVIDED DOSES)
     Route: 065
  3. DESMOPRESSIN [Concomitant]
     Active Substance: DESMOPRESSIN
     Dosage: 50 UG, QD (IN 2 DIVIDED DOSES)
     Route: 065
  4. DESMOPRESSIN [Concomitant]
     Active Substance: DESMOPRESSIN
     Dosage: 1150 UG, QD (IN 5 DIVIDED DOSES)
     Route: 065

REACTIONS (8)
  - Hyponatraemia [Recovering/Resolving]
  - Paronychia [Unknown]
  - Somnolence [Recovering/Resolving]
  - Fall [Recovering/Resolving]
  - Treatment failure [Unknown]
  - Rash erythematous [Recovering/Resolving]
  - Abdominal pain [Recovering/Resolving]
  - Diarrhoea [Recovering/Resolving]
